FAERS Safety Report 4559972-7 (Version None)
Quarter: 2005Q1

REPORT INFORMATION
  Report Type: 
  Country: None (occurrence: None)
  Receive Date: 20050120
  Receipt Date: 20050120
  Transmission Date: 20050727
  Serious: Yes (Other)
  Sender: FDA-Public Use
  Company Number: None

PATIENT
  Age: 62 Year
  Sex: Female
  Weight: 67.1324 kg

DRUGS (2)
  1. ARAVA [Suspect]
     Indication: POLYARTHRITIS
     Dosage: ONCE DAILY
     Dates: start: 20040415
  2. ARAVA [Suspect]
     Indication: POLYARTHRITIS
     Dosage: ONCE DAILY
     Dates: start: 20041209

REACTIONS (6)
  - CHEST DISCOMFORT [None]
  - CHEST PAIN [None]
  - DIZZINESS [None]
  - FATIGUE [None]
  - HYPOAESTHESIA [None]
  - MUSCULAR WEAKNESS [None]
